FAERS Safety Report 9968988 (Version 1)
Quarter: 2014Q1

REPORT INFORMATION
  Report Type: Spontaneous
  Country: US (occurrence: US)
  Receive Date: 20140306
  Receipt Date: 20140306
  Transmission Date: 20141002
  Serious: No
  Sender: FDA-Public Use
  Company Number: US-ABBVIE-13P-163-1139992-00

PATIENT
  Age: 50 Year
  Sex: Male
  Weight: 81.72 kg

DRUGS (2)
  1. HUMIRA [Suspect]
     Indication: COLITIS ULCERATIVE
     Dates: start: 20130705
  2. HUMIRA [Suspect]
     Indication: CROHN^S DISEASE

REACTIONS (3)
  - Wrong technique in drug usage process [Unknown]
  - Pain in extremity [Recovering/Resolving]
  - Device malfunction [Unknown]
